FAERS Safety Report 17830740 (Version 1)
Quarter: 2020Q2

REPORT INFORMATION
  Report Type: Spontaneous
  Country: GB (occurrence: GB)
  Receive Date: 20200527
  Receipt Date: 20200527
  Transmission Date: 20200714
  Serious: Yes (Hospitalization)
  Sender: FDA-Public Use
  Company Number: GB-BAXTER-2020BAX010546

PATIENT
  Age: 4 Year
  Sex: Male

DRUGS (3)
  1. DACTINOMYCIN [Suspect]
     Active Substance: DACTINOMYCIN
     Indication: EMBRYONAL RHABDOMYOSARCOMA
     Dosage: THREE WEEKLY CYCLES FOR 9 CYCLES, ON DAY 1
     Route: 065
  2. IFOSFAMIDE INJECTION 2G [Suspect]
     Active Substance: IFOSFAMIDE
     Indication: EMBRYONAL RHABDOMYOSARCOMA
     Dosage: THREE WEEKLY CYCLES FOR NINE CYCLES, 3 G/M2 ON DAYS 1 AND 2
     Route: 065
  3. VINCRISTINE [Suspect]
     Active Substance: VINCRISTINE
     Indication: EMBRYONAL RHABDOMYOSARCOMA
     Dosage: THREE WEEKLY CYCLES FOR 9 CYCLES, WEEKLY DURING THE FIRST 7 WEEKS, THEN ONLY ON DAY 1 OF EACH CYCLE.
     Route: 065

REACTIONS (1)
  - Neutropenic sepsis [Unknown]
